FAERS Safety Report 5797885-3 (Version None)
Quarter: 2008Q2

REPORT INFORMATION
  Report Type: 
  Country: None (occurrence: None)
  Receive Date: 20080630
  Receipt Date: 20080605
  Transmission Date: 20081010
  Serious: Yes (Other)
  Sender: FDA-Public Use
  Company Number: 005#3#2008-00001

PATIENT
  Age: 95 Year
  Sex: Male

DRUGS (1)
  1. NEUPRO [Suspect]
     Indication: PARKINSON'S DISEASE
     Route: 062
     Dates: start: 20080407, end: 20080417

REACTIONS (2)
  - PYREXIA [None]
  - WITHDRAWAL SYNDROME [None]
